FAERS Safety Report 8790330 (Version 1)
Quarter: 2012Q4

REPORT INFORMATION
  Report Type: 
  Country: US (occurrence: US)
  Receive Date: 20120917
  Receipt Date: 20120917
  Transmission Date: 20130627
  Serious: No
  Sender: FDA-Public Use
  Company Number: US-BAYER-2012-095964

PATIENT
  Age: 57 Year
  Sex: Female
  Weight: 72 kg

DRUGS (2)
  1. ALEVE CAPLET/TABLET,MIDOL EXTENDED RELIEF CAPLET [Suspect]
     Indication: TOOTHACHE
     Dosage: 1 DF, UNK
     Route: 048
     Dates: start: 20120909
  2. PROZAC [Concomitant]

REACTIONS (4)
  - Malaise [Not Recovered/Not Resolved]
  - Nausea [Not Recovered/Not Resolved]
  - Saliva altered [Not Recovered/Not Resolved]
  - Diarrhoea [Not Recovered/Not Resolved]
